FAERS Safety Report 18381999 (Version 1)
Quarter: 2020Q4

REPORT INFORMATION
  Report Type: Spontaneous
  Country: US (occurrence: US)
  Receive Date: 20201013
  Receipt Date: 20201013
  Transmission Date: 20210114
  Serious: Yes (Hospitalization, Other)
  Sender: FDA-Public Use
  Company Number: None

PATIENT
  Age: 76 Year
  Sex: Female

DRUGS (2)
  1. APIXABAN [Suspect]
     Active Substance: APIXABAN
     Route: 048
     Dates: start: 20200929, end: 20200930
  2. HEPARIN [Suspect]
     Active Substance: HEPARIN SODIUM

REACTIONS (2)
  - Subdural haemorrhage [None]
  - Fall [None]

NARRATIVE: CASE EVENT DATE: 20200930
